FAERS Safety Report 9559762 (Version 1)
Quarter: 2013Q3

REPORT INFORMATION
  Report Type: Spontaneous
  Country: US (occurrence: None)
  Receive Date: 20130906
  Receipt Date: 20130906
  Transmission Date: 20140515
  Serious: Yes (Hospitalization)
  Sender: FDA-Public Use
  Company Number: 163-POMAL-13080558

PATIENT
  Age: 55 Year
  Sex: Male
  Weight: 98.4 kg

DRUGS (3)
  1. POMALYST (POMALIDOMIDE) (CAPSULES) [Suspect]
     Indication: PLASMA CELL MYELOMA
     Dosage: 21 IN 21 D
     Route: 048
     Dates: start: 20130411, end: 20130425
  2. DEXAMETHASONE (DEXAMETHASONE) [Concomitant]
  3. MEGESTROL (MEGESTROL) [Concomitant]

REACTIONS (1)
  - Deep vein thrombosis [None]
